FAERS Safety Report 11094720 (Version 1)
Quarter: 2015Q2

REPORT INFORMATION
  Report Type: Spontaneous
  Country: RU (occurrence: RU)
  Receive Date: 20150506
  Receipt Date: 20150506
  Transmission Date: 20150821
  Serious: Yes (Death, Other)
  Sender: FDA-Public Use
  Company Number: RU-ASTRAZENECA-2015SE40656

PATIENT
  Age: 45 Year
  Sex: Female

DRUGS (1)
  1. BETALOC ZOK [Suspect]
     Active Substance: METOPROLOL SUCCINATE
     Dosage: 50-100 MG DAILY
     Route: 048

REACTIONS (5)
  - Palpitations [Unknown]
  - Autonomic nervous system imbalance [Unknown]
  - Death [Fatal]
  - Pulmonary embolism [Unknown]
  - Hypertension [Unknown]
